FAERS Safety Report 14613838 (Version 1)
Quarter: 2018Q1

REPORT INFORMATION
  Report Type: Spontaneous
  Country: CH (occurrence: CH)
  Receive Date: 20180308
  Receipt Date: 20180308
  Transmission Date: 20180509
  Serious: Yes (Other)
  Sender: FDA-Public Use
  Company Number: CH-PFIZER INC-2018058016

PATIENT
  Age: 72 Year
  Sex: Female

DRUGS (3)
  1. XELJANZ [Suspect]
     Active Substance: TOFACITINIB CITRATE
     Indication: RHEUMATOID ARTHRITIS
     Dosage: 5 MG, 2X/DAY
     Route: 048
     Dates: start: 20170601
  2. CLINDACYN /00166002/ [Interacting]
     Active Substance: CLINDAMYCIN HYDROCHLORIDE
     Indication: COUGH
     Dosage: UNK
     Route: 048
     Dates: start: 20180110, end: 20180115
  3. PRAVASTATIN. [Concomitant]
     Active Substance: PRAVASTATIN
     Indication: HYPERCHOLESTEROLAEMIA
     Dosage: UNK, 1X/DAY
     Route: 048

REACTIONS (3)
  - Symptom recurrence [Unknown]
  - Polyarthritis [Unknown]
  - Drug interaction [Unknown]
